FAERS Safety Report 17484140 (Version 1)
Quarter: 2020Q1

REPORT INFORMATION
  Report Type: Spontaneous
  Country: US (occurrence: US)
  Receive Date: 20200219
  Receipt Date: 20200219
  Transmission Date: 20200409
  Serious: No
  Sender: FDA-Public Use
  Company Number: None

PATIENT
  Age: 62 Week
  Sex: Female

DRUGS (1)
  1. HUMIRA [Suspect]
     Active Substance: ADALIMUMAB
     Indication: RHEUMATOID ARTHRITIS
     Dosage: ?          OTHER STRENGTH:40MG/0.8ML;OTHER FREQUENCY:EVERY 2 WEEKS;?
     Route: 058
     Dates: start: 201810

REACTIONS (7)
  - Vertigo [None]
  - Cough [None]
  - Fluid retention [None]
  - Joint fluid drainage [None]
  - Nasopharyngitis [None]
  - Sinus disorder [None]
  - Skin discolouration [None]
